FAERS Safety Report 25286308 (Version 2)
Quarter: 2025Q4

REPORT INFORMATION
  Report Type: Spontaneous
  Country: CA (occurrence: PK)
  Receive Date: 20250509
  Receipt Date: 20251031
  Transmission Date: 20260117
  Serious: Yes (Hospitalization)
  Sender: CELLTRION
  Company Number: CA-CELLTRION INC.-2025PK013996

PATIENT

DRUGS (1)
  1. INFLIXIMAB [Suspect]
     Active Substance: INFLIXIMAB
     Indication: Crohn^s disease
     Dosage: 240MG SC EVERY 2 WEEKS
     Route: 058
     Dates: start: 20241010

REACTIONS (2)
  - Mental disorder [Unknown]
  - Overdose [Unknown]
